FAERS Safety Report 9470118 (Version 1)
Quarter: 2013Q3

REPORT INFORMATION
  Report Type: Spontaneous
  Country: US (occurrence: US)
  Receive Date: 20130822
  Receipt Date: 20130822
  Transmission Date: 20140515
  Serious: No
  Sender: FDA-Public Use
  Company Number: US-ASTRAZENECA-2013SE49325

PATIENT
  Age: 64 Year
  Sex: Female
  Weight: 54.4 kg

DRUGS (1)
  1. ARIMIDEX [Suspect]
     Indication: BREAST CANCER
     Route: 048
     Dates: start: 20130612

REACTIONS (5)
  - Insomnia [Unknown]
  - Pain in extremity [Unknown]
  - Pain in extremity [Unknown]
  - Thinking abnormal [Unknown]
  - Hot flush [Unknown]
